FAERS Safety Report 25085312 (Version 1)
Quarter: 2025Q1

REPORT INFORMATION
  Report Type: Spontaneous
  Country: NL (occurrence: NL)
  Receive Date: 20250317
  Receipt Date: 20250317
  Transmission Date: 20250408
  Serious: Yes (Other)
  Sender: MYLAN
  Company Number: None

PATIENT
  Age: 76 Year
  Sex: Male
  Weight: 85 kg

DRUGS (4)
  1. DYMISTA [Suspect]
     Active Substance: AZELASTINE HYDROCHLORIDE\FLUTICASONE PROPIONATE
     Indication: Hypersensitivity
     Dosage: 1 MILLION PER LITRE, BID (2X PER DAY 1 SPRAY)
     Dates: start: 20250226, end: 20250304
  2. DYMISTA [Suspect]
     Active Substance: AZELASTINE HYDROCHLORIDE\FLUTICASONE PROPIONATE
     Dosage: 1 MILLION PER LITRE, BID (2X PER DAY 1 SPRAY)
     Route: 045
     Dates: start: 20250226, end: 20250304
  3. DYMISTA [Suspect]
     Active Substance: AZELASTINE HYDROCHLORIDE\FLUTICASONE PROPIONATE
     Dosage: 1 MILLION PER LITRE, BID (2X PER DAY 1 SPRAY)
     Route: 045
     Dates: start: 20250226, end: 20250304
  4. DYMISTA [Suspect]
     Active Substance: AZELASTINE HYDROCHLORIDE\FLUTICASONE PROPIONATE
     Dosage: 1 MILLION PER LITRE, BID (2X PER DAY 1 SPRAY)
     Dates: start: 20250226, end: 20250304

REACTIONS (6)
  - Deafness [Recovering/Resolving]
  - Ear discomfort [Recovering/Resolving]
  - Paranasal sinus discomfort [Recovering/Resolving]
  - Tinnitus [Recovering/Resolving]
  - Tension headache [Recovering/Resolving]
  - Oropharyngeal pain [Recovering/Resolving]
